FAERS Safety Report 5316697-8 (Version None)
Quarter: 2007Q2

REPORT INFORMATION
  Report Type: 
  Country: None (occurrence: None)
  Receive Date: 20070501
  Receipt Date: 20070501
  Transmission Date: 20071010
  Serious: Yes (Hospitalization)
  Sender: FDA-Public Use
  Company Number: None

PATIENT
  Age: 26 Year
  Sex: Female
  Weight: 54.8852 kg

DRUGS (2)
  1. COMPAZINE [Suspect]
     Indication: MIGRAINE
     Dates: start: 20070428, end: 20070428
  2. COMPAZINE [Suspect]
     Indication: NAUSEA
     Dates: start: 20070428, end: 20070428

REACTIONS (3)
  - ANXIETY [None]
  - MUSCLE SPASMS [None]
  - PAIN [None]
